FAERS Safety Report 9605226 (Version 3)
Quarter: 2013Q4

REPORT INFORMATION
  Report Type: Report from Study
  Country: US (occurrence: US)
  Receive Date: 20131008
  Receipt Date: 20131122
  Transmission Date: 20140711
  Serious: Yes (Other)
  Sender: FDA-Public Use
  Company Number: US-US-EMD SERONO, INC.-7241417

PATIENT
  Age: 57 Year
  Sex: Female

DRUGS (5)
  1. REBIF [Suspect]
     Indication: MULTIPLE SCLEROSIS
     Route: 058
     Dates: start: 20060308, end: 201302
  2. REBIF [Suspect]
     Route: 058
     Dates: start: 201303
  3. ADVIL                              /00109201/ [Concomitant]
     Indication: PREMEDICATION
  4. BACLOFEN [Concomitant]
     Indication: MUSCLE SPASTICITY
     Route: 048
     Dates: start: 2007
  5. GABAPENTIN [Concomitant]
     Indication: DYSAESTHESIA
     Route: 048
     Dates: start: 2007

REACTIONS (14)
  - Meningioma [Recovered/Resolved]
  - Injury associated with device [Not Recovered/Not Resolved]
  - Confusion postoperative [Recovering/Resolving]
  - Hypertension [Recovered/Resolved]
  - Insomnia [Recovered/Resolved]
  - Fall [Recovered/Resolved]
  - Feeling abnormal [Recovered/Resolved]
  - Depression [Recovered/Resolved]
  - Pain [Recovered/Resolved]
  - Fatigue [Recovering/Resolving]
  - Injection site bruising [Not Recovered/Not Resolved]
  - Injection site pain [Not Recovered/Not Resolved]
  - Injection site erythema [Not Recovered/Not Resolved]
  - Injection site swelling [Not Recovered/Not Resolved]
